FAERS Safety Report 17781595 (Version 1)
Quarter: 2020Q2

REPORT INFORMATION
  Report Type: Spontaneous
  Country: US (occurrence: US)
  Receive Date: 20200514
  Receipt Date: 20200514
  Transmission Date: 20200714
  Serious: No
  Sender: FDA-Public Use
  Company Number: US-TEVA-2020-US-1235226

PATIENT
  Age: 78 Year
  Sex: Female

DRUGS (1)
  1. LISINOPRIL TEVA [Suspect]
     Active Substance: LISINOPRIL
     Route: 065
     Dates: start: 2016

REACTIONS (2)
  - Gastrointestinal disorder [Unknown]
  - Diarrhoea [Unknown]
